FAERS Safety Report 5198073-4 (Version None)
Quarter: 2006Q4

REPORT INFORMATION
  Report Type: 
  Country: None (occurrence: None)
  Receive Date: 20061228
  Receipt Date: 20061218
  Transmission Date: 20070319
  Serious: Yes (Death, Hospitalization)
  Sender: FDA-Public Use
  Company Number: GXKR2006US08230

PATIENT
  Age: 65 Year
  Sex: Male

DRUGS (3)
  1. AZATHIOPRINE [Suspect]
     Indication: IMMUNOSUPPRESSION
     Dosage: 200 MG, QD, ORAL
     Route: 048
     Dates: start: 20050701
  2. PREDNISONE [Suspect]
     Indication: IMMUNOSUPPRESSION
     Dosage: 10 MG, QD, ORAL
     Route: 048
     Dates: start: 20050701
  3. TACROLIMUS (TACROLIMUS) [Suspect]
     Indication: IMMUNOSUPPRESSION
     Dosage: SEE IMAGE
     Route: 048
     Dates: start: 20050701

REACTIONS (9)
  - B-CELL LYMPHOMA [None]
  - FATIGUE [None]
  - HYPOKINESIA [None]
  - LEFT VENTRICULAR FAILURE [None]
  - LETHARGY [None]
  - PANCREATITIS [None]
  - RENAL FAILURE ACUTE [None]
  - RENAL IMPAIRMENT [None]
  - TUMOUR LYSIS SYNDROME [None]
